FAERS Safety Report 11821788 (Version 1)
Quarter: 2015Q4

REPORT INFORMATION
  Report Type: Spontaneous
  Country: US (occurrence: US)
  Receive Date: 20151210
  Receipt Date: 20151210
  Transmission Date: 20160305
  Serious: No
  Sender: FDA-Public Use
  Company Number: US-JNJFOC-20150607281

PATIENT
  Age: 82 Year
  Sex: Female

DRUGS (4)
  1. IMBRUVICA [Suspect]
     Active Substance: IBRUTINIB
     Indication: WALDENSTROM^S MACROGLOBULINAEMIA
     Route: 048
     Dates: start: 20140115
  2. SYNTHROID [Concomitant]
     Active Substance: LEVOTHYROXINE SODIUM
  3. LATANOPROST. [Concomitant]
     Active Substance: LATANOPROST
  4. ATIVAN [Concomitant]
     Active Substance: LORAZEPAM

REACTIONS (7)
  - Incorrect dose administered [Not Recovered/Not Resolved]
  - Eye disorder [Unknown]
  - Nasopharyngitis [Unknown]
  - Oral herpes [Unknown]
  - Cataract [Unknown]
  - Haematuria [Unknown]
  - Contusion [Unknown]

NARRATIVE: CASE EVENT DATE: 20140115
